FAERS Safety Report 5001652-8 (Version None)
Quarter: 2006Q2

REPORT INFORMATION
  Report Type: 
  Country: None (occurrence: None)
  Receive Date: 20060515
  Receipt Date: 20060504
  Transmission Date: 20061013
  Serious: Yes (Death)
  Sender: FDA-Public Use
  Company Number: US-JNJFOC-20060501361

PATIENT
  Sex: Female

DRUGS (13)
  1. REMICADE [Suspect]
     Route: 042
  2. REMICADE [Suspect]
     Indication: RHEUMATOID ARTHRITIS
     Route: 042
  3. ALBUTEROL SULFATE AUTOHALER [Concomitant]
  4. AMITRIPTYLINE HCL [Concomitant]
  5. ASPIRIN [Concomitant]
  6. ATACAND [Concomitant]
  7. FUROSEMIDE [Concomitant]
  8. LABETALOL [Concomitant]
  9. ISOSORBIDE [Concomitant]
  10. PREDNISONE TAB [Concomitant]
  11. PRINIVIL [Concomitant]
  12. TYLENOL (CAPLET) [Concomitant]
  13. VYTORIN [Concomitant]

REACTIONS (1)
  - NEOPLASM MALIGNANT [None]
